FAERS Safety Report 5041988-8 (Version None)
Quarter: 2006Q2

REPORT INFORMATION
  Report Type: 
  Country: None (occurrence: None)
  Receive Date: 20060627
  Receipt Date: 20060613
  Transmission Date: 20061013
  Serious: Yes (Hospitalization, Other)
  Sender: FDA-Public Use
  Company Number: 2006059058

PATIENT
  Age: 47 Year
  Sex: Male
  Weight: 127.0072 kg

DRUGS (14)
  1. CELEBREX [Suspect]
     Indication: PAIN
     Dosage: 400 MG (200 MG, 2 IN 1 D)
     Dates: start: 20020101
  2. VIOXX [Suspect]
     Indication: PAIN
     Dosage: (1 IN 1 D)
     Dates: start: 20011101
  3. ZYRTEC [Concomitant]
  4. NEURONTIN [Concomitant]
  5. VIAGRA [Concomitant]
  6. LOTREL [Concomitant]
  7. HYDROCHLOROTHIAZIDE [Concomitant]
  8. DOCUSATE SODIUM (DOCUSATE SODIUM) [Concomitant]
  9. AMBIEN [Concomitant]
  10. ASPIRIN [Concomitant]
  11. NORTRIPTYLINE HCL [Concomitant]
  12. WELLBUTRIN SR [Concomitant]
  13. NAPROXEN [Concomitant]
  14. FIBERLAX (POLYCARBOPHIL) [Concomitant]

REACTIONS (18)
  - ANGINA PECTORIS [None]
  - ASTHENIA [None]
  - BLOOD CHOLESTEROL INCREASED [None]
  - CARDIOMYOPATHY [None]
  - CEREBROVASCULAR DISORDER [None]
  - CONFUSIONAL STATE [None]
  - DIABETES MELLITUS [None]
  - DYSARTHRIA [None]
  - FALL [None]
  - GAIT DISTURBANCE [None]
  - HEADACHE [None]
  - HYPERTENSION [None]
  - HYPOKALAEMIA [None]
  - MENTAL STATUS CHANGES [None]
  - RENAL DISORDER [None]
  - SNAKE BITE [None]
  - SYNCOPE [None]
  - TRANSIENT ISCHAEMIC ATTACK [None]
